FAERS Safety Report 7407316-5 (Version None)
Quarter: 2011Q2

REPORT INFORMATION
  Report Type: 
  Country: None (occurrence: None)
  Receive Date: 20110411
  Receipt Date: 20110331
  Transmission Date: 20111010
  Serious: Yes (Hospitalization, Other)
  Sender: FDA-Public Use
  Company Number: BR-ASTRAZENECA-2011SE18752

PATIENT
  Age: 74 Year
  Sex: Female
  Weight: 70 kg

DRUGS (10)
  1. POLARAMINE [Concomitant]
     Indication: HYPERSENSITIVITY
     Dosage: PRN
     Route: 048
  2. VERAPAMIL HYDROCHLORIDE [Concomitant]
     Indication: HYPERTENSION
     Route: 048
  3. PREDSIN [Concomitant]
     Indication: HYPERSENSITIVITY
     Route: 048
  4. SYMBICORT [Suspect]
     Indication: ASTHMA
     Dosage: 320/9 UG BID
     Route: 055
     Dates: start: 20070101, end: 20101201
  5. SINGULAIR [Concomitant]
     Indication: HYPERSENSITIVITY
     Dosage: PRN
     Route: 048
  6. ANASTROZOLE [Suspect]
     Indication: BREAST CANCER
     Dosage: OD
     Route: 048
     Dates: start: 20080101
  7. VANNAIR [Suspect]
     Indication: ASTHMA
     Dosage: 6/200 UG BID
     Route: 055
     Dates: start: 20110101, end: 20110321
  8. MODURETIC 5-50 [Concomitant]
     Indication: HYPERTENSION
     Route: 048
  9. SYMBICORT [Suspect]
     Dosage: UNKNOWN DOSE AS NEEDED
     Route: 055
     Dates: start: 20070101, end: 20101201
  10. ATENSINA [Concomitant]
     Indication: HYPERTENSION
     Route: 048

REACTIONS (6)
  - URTICARIA [None]
  - DYSPNOEA [None]
  - BREAST CANCER [None]
  - DEVICE DIFFICULT TO USE [None]
  - LOCAL SWELLING [None]
  - EYE HAEMORRHAGE [None]
